FAERS Safety Report 10076973 (Version 2)
Quarter: 2014Q2

REPORT INFORMATION
  Report Type: Spontaneous
  Country: CH (occurrence: CH)
  Receive Date: 20140414
  Receipt Date: 20140422
  Transmission Date: 20141212
  Serious: Yes (Hospitalization, Other)
  Sender: FDA-Public Use
  Company Number: CH-BMSGILMSD-2014-0099401

PATIENT
  Age: 54 Year
  Sex: Male

DRUGS (6)
  1. VIREAD [Suspect]
     Indication: HIV INFECTION
     Route: 048
     Dates: start: 200308, end: 200806
  2. ATRIPLA [Suspect]
     Indication: HIV INFECTION
     Route: 048
     Dates: start: 201011, end: 201304
  3. STOCRIN [Concomitant]
     Indication: HIV INFECTION
     Dosage: 600 MG, QD
     Route: 065
     Dates: start: 201304
  4. KIVEXA [Concomitant]
     Indication: HIV INFECTION
     Dosage: 600 MG, QD
     Route: 048
     Dates: start: 201304
  5. VALIUM [Concomitant]
     Dosage: 10 MG, TID
  6. REMERON [Concomitant]

REACTIONS (5)
  - Renal tubular acidosis [Recovered/Resolved]
  - Urine potassium increased [Recovered/Resolved]
  - Proteinuria [Unknown]
  - Tubulointerstitial nephritis [Unknown]
  - Tubulointerstitial nephritis [Unknown]
